FAERS Safety Report 7016259-0 (Version None)
Quarter: 2010Q3

REPORT INFORMATION
  Report Type: 
  Country: None (occurrence: None)
  Receive Date: 20100927
  Receipt Date: 20100916
  Transmission Date: 20110219
  Serious: Yes (Hospitalization)
  Sender: FDA-Public Use
  Company Number: US-AMGEN-US366727

PATIENT
  Sex: Female

DRUGS (18)
  1. PANITUMUMAB [Suspect]
     Indication: SQUAMOUS CELL CARCINOMA
     Route: 042
     Dates: start: 20090923
  2. ALLEGRA [Concomitant]
     Route: 048
     Dates: start: 20090904
  3. ALPHAGAN [Concomitant]
     Route: 061
     Dates: start: 20090904
  4. COSOPT [Concomitant]
     Route: 061
     Dates: start: 20090904
  5. DORZOLAMIDE [Concomitant]
     Route: 061
     Dates: start: 20090904
  6. LATANOPROST [Concomitant]
     Route: 061
     Dates: start: 20090904
  7. CELEXA [Concomitant]
     Route: 048
     Dates: start: 20090904, end: 20091004
  8. CELEXA [Concomitant]
     Route: 048
     Dates: start: 20091004, end: 20091017
  9. COLACE [Concomitant]
     Route: 048
     Dates: start: 20090904
  10. FENTANYL CITRATE [Concomitant]
     Route: 062
     Dates: start: 20090904, end: 20091004
  11. FENTANYL CITRATE [Concomitant]
     Route: 062
     Dates: start: 20091004
  12. GLIMEPIRIDE [Concomitant]
     Route: 048
     Dates: start: 20090904
  13. K-DUR [Concomitant]
     Route: 048
     Dates: start: 20090904
  14. MULTI-VITAMINS [Concomitant]
     Route: 048
     Dates: start: 20090904
  15. OXYCODONE [Concomitant]
     Route: 048
     Dates: start: 20090904
  16. SENNA [Concomitant]
     Route: 048
     Dates: start: 20090904
  17. DEXAMETHASONE [Concomitant]
     Route: 048
     Dates: start: 20090904
  18. SYNTHROID [Concomitant]
     Route: 048
     Dates: start: 20091004

REACTIONS (4)
  - HYPERGLYCAEMIA [None]
  - INFECTION [None]
  - LYMPHOPENIA [None]
  - MENTAL DISORDER [None]
